FAERS Safety Report 14763644 (Version 1)
Quarter: 2018Q2

REPORT INFORMATION
  Report Type: Spontaneous
  Country: FR (occurrence: FR)
  Receive Date: 20180416
  Receipt Date: 20180416
  Transmission Date: 20180711
  Serious: Yes (Hospitalization)
  Sender: FDA-Public Use
  Company Number: FR-TEVA-2018-FR-882470

PATIENT
  Age: 67 Year
  Sex: Female

DRUGS (2)
  1. OLAPARIB 50 MG, G?LULE [Suspect]
     Active Substance: OLAPARIB
     Indication: NEOPLASM MALIGNANT
     Route: 048
  2. DOXORUBICINE (CHLORHYDRATE DE) [Suspect]
     Active Substance: DOXORUBICIN
     Indication: NEOPLASM MALIGNANT
     Route: 065

REACTIONS (3)
  - Arrhythmia [Recovering/Resolving]
  - Palpitations [Recovering/Resolving]
  - Hypertension [Recovering/Resolving]
